FAERS Safety Report 5240538-0 (Version None)
Quarter: 2007Q1

REPORT INFORMATION
  Report Type: 
  Country: None (occurrence: None)
  Receive Date: 20070219
  Receipt Date: 20070205
  Transmission Date: 20070707
  Serious: Yes (Disabling)
  Sender: FDA-Public Use
  Company Number: FI-ROCHE-480996

PATIENT
  Age: 43 Year
  Sex: Male

DRUGS (1)
  1. XELODA [Suspect]
     Route: 048
     Dates: start: 20051215, end: 20060625

REACTIONS (1)
  - TENDONITIS [None]
